FAERS Safety Report 9375529 (Version 1)
Quarter: 2013Q2

REPORT INFORMATION
  Report Type: Report from Study
  Country: BR (occurrence: BR)
  Receive Date: 20130628
  Receipt Date: 20130628
  Transmission Date: 20140414
  Serious: Yes (Hospitalization, Other)
  Sender: FDA-Public Use
  Company Number: PHHY2013BR066844

PATIENT
  Sex: Female

DRUGS (3)
  1. RASILEZ [Suspect]
     Dosage: 300 MG, UNK
     Dates: start: 201301, end: 201306
  2. DIOVAN [Suspect]
     Dosage: UNK UKN, UNK
  3. ALMETEC [Suspect]
     Dosage: UNK UKN, UNK

REACTIONS (2)
  - Cerebrovascular accident [Recovering/Resolving]
  - Hemiplegia [Unknown]
